FAERS Safety Report 23314540 (Version 2)
Quarter: 2025Q2

REPORT INFORMATION
  Report Type: Report from Study
  Country: US (occurrence: US)
  Receive Date: 20231219
  Receipt Date: 20250418
  Transmission Date: 20250717
  Serious: Yes (Hospitalization, Other)
  Sender: TAKEDA
  Company Number: US-TAKEDA-2023TUS121146

PATIENT
  Sex: Male

DRUGS (1)
  1. PRUCALOPRIDE [Suspect]
     Active Substance: PRUCALOPRIDE
     Indication: Product used for unknown indication

REACTIONS (4)
  - Intestinal obstruction [Unknown]
  - Urinary tract infection [Unknown]
  - Product use issue [Unknown]
  - Intentional product misuse [Unknown]
